FAERS Safety Report 7121161-X (Version None)
Quarter: 2010Q4

REPORT INFORMATION
  Report Type: 
  Country: None (occurrence: None)
  Receive Date: 20101124
  Receipt Date: 20101110
  Transmission Date: 20110411
  Serious: Yes (Other)
  Sender: FDA-Public Use
  Company Number: PHFR2010GB04669

PATIENT
  Sex: Male

DRUGS (1)
  1. CLOZARIL [Suspect]
     Dosage: 100 MG IN THE MORNING AND 200 MG AT NIGHT
     Route: 048
     Dates: start: 20100924

REACTIONS (2)
  - DIFFERENTIAL WHITE BLOOD CELL COUNT ABNORMAL [None]
  - EOSINOPHIL COUNT INCREASED [None]
